FAERS Safety Report 21194735 (Version 1)
Quarter: 2022Q3

REPORT INFORMATION
  Report Type: Spontaneous
  Country: CA (occurrence: None)
  Receive Date: 20220810
  Receipt Date: 20220810
  Transmission Date: 20221026
  Serious: Yes (Hospitalization, Other)
  Sender: FDA-Public Use
  Company Number: 2022A277230

PATIENT
  Age: 20 Year
  Sex: Male

DRUGS (14)
  1. QUETIAPINE [Suspect]
     Active Substance: QUETIAPINE
     Indication: Substance use
     Dosage: 1000.0MG UNKNOWN
     Route: 065
  2. QUETIAPINE [Suspect]
     Active Substance: QUETIAPINE
     Indication: Social anxiety disorder
     Dosage: 1000.0MG UNKNOWN
     Route: 065
  3. QUETIAPINE [Suspect]
     Active Substance: QUETIAPINE
     Indication: Schizophrenia
     Dosage: 1000.0MG UNKNOWN
     Route: 065
  4. ARIPIPRAZOLE [Suspect]
     Active Substance: ARIPIPRAZOLE
     Indication: Substance use
     Dosage: 15.0MG UNKNOWN
     Route: 065
  5. ARIPIPRAZOLE [Suspect]
     Active Substance: ARIPIPRAZOLE
     Indication: Social anxiety disorder
     Dosage: 15.0MG UNKNOWN
     Route: 065
  6. ARIPIPRAZOLE [Suspect]
     Active Substance: ARIPIPRAZOLE
     Indication: Schizophrenia
     Dosage: 15.0MG UNKNOWN
     Route: 065
  7. RISPERIDONE [Suspect]
     Active Substance: RISPERIDONE
     Indication: Substance use
     Dosage: 2.0MG UNKNOWN
     Route: 048
  8. RISPERIDONE [Suspect]
     Active Substance: RISPERIDONE
     Indication: Social anxiety disorder
     Dosage: 2.0MG UNKNOWN
     Route: 048
  9. RISPERIDONE [Suspect]
     Active Substance: RISPERIDONE
     Indication: Schizophrenia
     Dosage: 2.0MG UNKNOWN
     Route: 048
  10. SERTRALINE [Suspect]
     Active Substance: SERTRALINE HYDROCHLORIDE
     Indication: Social anxiety disorder
     Dosage: 100.0MG UNKNOWN
     Route: 065
  11. BENZTROPINE [Concomitant]
     Active Substance: BENZTROPINE
  12. CLOZAPINE [Concomitant]
     Active Substance: CLOZAPINE
  13. LORAZEPAM [Concomitant]
     Active Substance: LORAZEPAM
     Route: 065
  14. PALIPERIDONE PALMITATE [Concomitant]
     Active Substance: PALIPERIDONE PALMITATE
     Route: 030

REACTIONS (7)
  - Hallucination [Unknown]
  - Myalgia [Unknown]
  - Blood creatine phosphokinase increased [Unknown]
  - Rhabdomyolysis [Unknown]
  - Weight increased [Unknown]
  - Treatment noncompliance [Unknown]
  - Drug ineffective [Unknown]
